FAERS Safety Report 19372279 (Version 1)
Quarter: 2021Q2

REPORT INFORMATION
  Report Type: Spontaneous
  Country: CA (occurrence: CA)
  Receive Date: 20210604
  Receipt Date: 20210604
  Transmission Date: 20210717
  Serious: Yes (Other)
  Sender: FDA-Public Use
  Company Number: CA-ROCHE-2841404

PATIENT
  Age: 42 Year
  Sex: Female

DRUGS (2)
  1. VISMODEGIB. [Suspect]
     Active Substance: VISMODEGIB
     Indication: METASTASES TO BONE
     Dosage: (THERAPY DURATION 1 YEAR)
     Route: 048
  2. VINCRISTINE [Suspect]
     Active Substance: VINCRISTINE
     Indication: MEDULLOBLASTOMA
     Route: 065

REACTIONS (7)
  - Pneumocystis jirovecii pneumonia [Unknown]
  - Myelosuppression [Unknown]
  - Pulmonary embolism [Unknown]
  - Dysgeusia [Unknown]
  - Alopecia [Unknown]
  - Pulmonary toxicity [Unknown]
  - Muscle spasms [Unknown]
